FAERS Safety Report 5623991-X (Version None)
Quarter: 2008Q1

REPORT INFORMATION
  Report Type: 
  Country: None (occurrence: None)
  Receive Date: 20080213
  Receipt Date: 20080206
  Transmission Date: 20080703
  Serious: Yes (Other)
  Sender: FDA-Public Use
  Company Number: HQWYE113612SEP07

PATIENT
  Sex: Female
  Weight: 59.02 kg

DRUGS (12)
  1. EFFEXOR XR [Suspect]
     Indication: MAJOR DEPRESSION
     Route: 048
     Dates: start: 20040801, end: 20070811
  2. EFFEXOR XR [Suspect]
     Route: 048
     Dates: start: 20070812, end: 20070101
  3. EFFEXOR XR [Suspect]
     Route: 048
     Dates: start: 20070101, end: 20070101
  4. EFFEXOR XR [Suspect]
     Route: 048
     Dates: start: 20070101
  5. CYTOMEL [Concomitant]
     Indication: HYPOTHYROIDISM
     Dosage: 25 MCG 1 + 1/2 DAILY
     Route: 048
     Dates: start: 20070401
  6. RITALIN [Concomitant]
     Route: 048
     Dates: start: 20070806
  7. XANAX [Concomitant]
     Indication: ANXIETY DISORDER
     Route: 048
  8. MUCINEX [Concomitant]
     Indication: NASOPHARYNGITIS
     Dosage: UNKNOWN
  9. VERAPAMIL [Concomitant]
     Indication: ATRIAL TACHYCARDIA
     Route: 048
     Dates: start: 19870101
  10. METHYLPHENIDATE HCL [Suspect]
     Indication: ATTENTION DEFICIT/HYPERACTIVITY DISORDER
     Route: 048
     Dates: start: 20040801, end: 20070811
  11. METHYLPHENIDATE HCL [Suspect]
     Route: 048
     Dates: start: 20070811
  12. SYNTHROID [Concomitant]
     Indication: HYPOTHYROIDISM
     Dosage: 100 MCG DAILY
     Route: 048
     Dates: start: 20070401

REACTIONS (2)
  - DRUG WITHDRAWAL SYNDROME [None]
  - SUICIDAL IDEATION [None]
